FAERS Safety Report 8973422 (Version 1)
Quarter: 2012Q4

REPORT INFORMATION
  Report Type: 
  Country: PR (occurrence: PR)
  Receive Date: 20121219
  Receipt Date: 20121219
  Transmission Date: 20130627
  Serious: Yes (Other)
  Sender: FDA-Public Use
  Company Number: PR-BAYER-2012-132504

PATIENT

DRUGS (1)
  1. STIVARGA [Suspect]

REACTIONS (1)
  - Fatigue [None]
